FAERS Safety Report 24665686 (Version 1)
Quarter: 2024Q4

REPORT INFORMATION
  Report Type: Spontaneous
  Country: US (occurrence: US)
  Receive Date: 20241126
  Receipt Date: 20241126
  Transmission Date: 20250114
  Serious: No
  Sender: PFIZER
  Company Number: US-PFIZER INC-PV202400086713

PATIENT
  Age: 82 Year
  Sex: Female

DRUGS (2)
  1. TUKYSA [Suspect]
     Active Substance: TUCATINIB
     Indication: Lung neoplasm malignant
     Dosage: 150MG TAKE 1 TABLET TWICE A DAY
  2. TUKYSA [Suspect]
     Active Substance: TUCATINIB
     Dosage: TAKE 1 CAP OF 150MG WITH 1 CAP OF 50MG TWICE DAILY

REACTIONS (2)
  - Neoplasm progression [Unknown]
  - Off label use [Unknown]
